FAERS Safety Report 6674692-0 (Version None)
Quarter: 2010Q2

REPORT INFORMATION
  Report Type: 
  Country: None (occurrence: None)
  Receive Date: 20100409
  Receipt Date: 20100325
  Transmission Date: 20101027
  Serious: Yes (Other)
  Sender: FDA-Public Use
  Company Number: ES-ELI_LILLY_AND_COMPANY-ES201003007862

PATIENT
  Sex: Female

DRUGS (3)
  1. FORTEO [Suspect]
     Indication: FRACTURE
     Dosage: 20 UG, DAILY (1/D)
     Route: 058
     Dates: start: 20100322, end: 20100323
  2. INTRON A [Concomitant]
     Indication: MASTOCYTOSIS
     Dosage: UNK, DAILY (1/D)
     Route: 030
  3. NATECAL D [Concomitant]
     Indication: FRACTURE
     Dosage: 1 D/F, DAILY (1/D)
     Route: 048

REACTIONS (3)
  - PYREXIA [None]
  - TREMOR [None]
  - VOMITING [None]
